FAERS Safety Report 24863463 (Version 1)
Quarter: 2025Q1

REPORT INFORMATION
  Report Type: Spontaneous
  Country: US (occurrence: US)
  Receive Date: 20250120
  Receipt Date: 20250120
  Transmission Date: 20250408
  Serious: Yes (Other)
  Sender: ABBVIE
  Company Number: US-ABBVIE-6092206

PATIENT
  Age: 34 Year
  Sex: Female

DRUGS (3)
  1. ADALIMUMAB [Suspect]
     Active Substance: ADALIMUMAB
     Indication: Hidradenitis
     Route: 058
  2. CYCLOSPORINE [Suspect]
     Active Substance: CYCLOSPORINE
     Indication: Hidradenitis
     Route: 048
  3. GUSELKUMAB [Concomitant]
     Active Substance: GUSELKUMAB
     Indication: Hidradenitis
     Route: 065

REACTIONS (2)
  - Pustular psoriasis [Unknown]
  - Therapeutic product effect incomplete [Unknown]
